FAERS Safety Report 8339533-4 (Version None)
Quarter: 2012Q2

REPORT INFORMATION
  Report Type: 
  Country: None (occurrence: None)
  Receive Date: 20120507
  Receipt Date: 20120430
  Transmission Date: 20120825
  Serious: Yes (Hospitalization, Other)
  Sender: FDA-Public Use
  Company Number: PHHY2012FR037517

PATIENT
  Age: 7 Month
  Sex: Female

DRUGS (1)
  1. ZOMETA [Suspect]
     Indication: HYPERCALCAEMIA
     Dosage: 0.01 MG/KG, UNK
     Dates: start: 20120407

REACTIONS (5)
  - HYPERTHERMIA [None]
  - LEUKOPENIA [None]
  - ESCHERICHIA INFECTION [None]
  - INFLAMMATION [None]
  - PYELONEPHRITIS [None]
